FAERS Safety Report 11000461 (Version 1)
Quarter: 2015Q2

REPORT INFORMATION
  Report Type: Spontaneous
  Country: US (occurrence: US)
  Receive Date: 20150408
  Receipt Date: 20150408
  Transmission Date: 20150821
  Serious: No
  Sender: FDA-Public Use
  Company Number: US-SA-2014SA095156

PATIENT
  Sex: Male

DRUGS (1)
  1. ALLEGRA [Suspect]
     Active Substance: FEXOFENADINE HYDROCHLORIDE
     Indication: HOUSE DUST ALLERGY
     Dosage: TAKEN FROM- FOR A COUPLE YEARS
     Route: 048

REACTIONS (2)
  - Dysgeusia [Unknown]
  - Abdominal pain upper [Unknown]
